FAERS Safety Report 26196685 (Version 1)
Quarter: 2025Q4

REPORT INFORMATION
  Report Type: Spontaneous
  Country: BR (occurrence: BR)
  Receive Date: 20251224
  Receipt Date: 20251224
  Transmission Date: 20260117
  Serious: Yes (Other)
  Sender: ELI LILLY AND COMPANY
  Company Number: BR-ELI_LILLY_AND_COMPANY-BR202512025587

PATIENT
  Sex: Female

DRUGS (2)
  1. TALTZ [Suspect]
     Active Substance: IXEKIZUMAB
     Indication: Ankylosing spondylitis
     Dosage: 80 MG, OTHER (EVERY 30 DAYS)
     Route: 065
     Dates: start: 202410
  2. TALTZ [Suspect]
     Active Substance: IXEKIZUMAB
     Dosage: 80 MG, OTHER (EVERY 30 DAYS)
     Route: 065
     Dates: start: 20251120

REACTIONS (6)
  - Adenoidal hypertrophy [Recovered/Resolved]
  - Dyspnoea [Recovered/Resolved]
  - Decreased appetite [Recovered/Resolved]
  - Dysphonia [Recovered/Resolved]
  - Dysphagia [Recovered/Resolved]
  - Skin lesion [Recovered/Resolved]

NARRATIVE: CASE EVENT DATE: 20250101
